FAERS Safety Report 13671877 (Version 1)
Quarter: 2017Q2

REPORT INFORMATION
  Report Type: Spontaneous
  Country: NL (occurrence: NL)
  Receive Date: 20170620
  Receipt Date: 20170620
  Transmission Date: 20170830
  Serious: Yes (Hospitalization)
  Sender: FDA-Public Use
  Company Number: NL-B.I. PHARMACEUTICALS,INC./RIDGEFIELD-2017-BI-033637

PATIENT
  Age: 63 Year
  Sex: Male
  Weight: 88 kg

DRUGS (1)
  1. VARGATEF [Suspect]
     Active Substance: NINTEDANIB
     Indication: NON-SMALL CELL LUNG CANCER
     Route: 065
     Dates: start: 20170410, end: 20170605

REACTIONS (1)
  - Pneumonitis [Recovering/Resolving]

NARRATIVE: CASE EVENT DATE: 20170601
